FAERS Safety Report 5221241-X (Version None)
Quarter: 2007Q1

REPORT INFORMATION
  Report Type: 
  Country: None (occurrence: None)
  Receive Date: 20070126
  Receipt Date: 20070116
  Transmission Date: 20070707
  Serious: Yes (Death)
  Sender: FDA-Public Use
  Company Number: AU-PFIZER INC-2006155902

PATIENT
  Age: 47 Year
  Sex: Male

DRUGS (7)
  1. NEURONTIN [Interacting]
  2. XANAX [Suspect]
  3. MS CONTIN [Interacting]
  4. ALODORM [Interacting]
  5. KALMA [Concomitant]
  6. ACIMAX [Concomitant]
  7. VIAGRA [Concomitant]

REACTIONS (4)
  - DRUG ADMINISTRATION ERROR [None]
  - DRUG INTERACTION [None]
  - OVERDOSE [None]
  - RESPIRATORY DEPRESSION [None]
